FAERS Safety Report 6827719-7 (Version None)
Quarter: 2010Q3

REPORT INFORMATION
  Report Type: 
  Country: None (occurrence: None)
  Receive Date: 20100709
  Receipt Date: 20070126
  Transmission Date: 20110219
  Serious: Yes (Other)
  Sender: FDA-Public Use
  Company Number: US-PFIZER INC-2007006094

PATIENT
  Sex: Female
  Weight: 95.3 kg

DRUGS (8)
  1. CHANTIX [Suspect]
     Indication: EX-TOBACCO USER
     Route: 048
     Dates: start: 20070120
  2. HUMALOG [Concomitant]
  3. LANTUS [Concomitant]
  4. SYNTHROID [Concomitant]
  5. RISPERDAL [Concomitant]
  6. WELLBUTRIN [Concomitant]
  7. LIPITOR [Concomitant]
  8. HYZAAR [Concomitant]
     Route: 048

REACTIONS (2)
  - ABNORMAL DREAMS [None]
  - BLOOD GLUCOSE DECREASED [None]
